FAERS Safety Report 5044624-X (Version None)
Quarter: 2006Q2

REPORT INFORMATION
  Report Type: 
  Country: None (occurrence: None)
  Receive Date: 20060629
  Receipt Date: 20060616
  Transmission Date: 20061013
  Serious: Yes (Other)
  Sender: FDA-Public Use
  Company Number: S06-HRV-02596-01

PATIENT
  Age: 49 Year
  Sex: Male

DRUGS (4)
  1. ESCITALOPRAM OXALATE [Suspect]
     Indication: DEPRESSION
     Dosage: 5 MG QD PO
     Route: 048
     Dates: start: 20050510, end: 20060102
  2. ESCITALOPRAM OXALATE [Suspect]
     Indication: DISEASE RECURRENCE
     Dosage: 5 MG QD PO
     Route: 048
     Dates: start: 20050510, end: 20060102
  3. THIAMAZOLE [Concomitant]
  4. ATENOLOL [Concomitant]

REACTIONS (3)
  - EJACULATION FAILURE [None]
  - ERECTILE DYSFUNCTION [None]
  - LOSS OF LIBIDO [None]
